FAERS Safety Report 5638291-1 (Version None)
Quarter: 2008Q1

REPORT INFORMATION
  Report Type: 
  Country: None (occurrence: None)
  Receive Date: 20080226
  Receipt Date: 20080218
  Transmission Date: 20080703
  Serious: Yes (Death)
  Sender: FDA-Public Use
  Company Number: US-BAXTER-2008BH001584

PATIENT
  Age: 66 Year
  Sex: Male

DRUGS (7)
  1. METHYLPREDNISOLONE [Suspect]
     Indication: POLYMYOSITIS
     Route: 042
  2. PROPOFOL [Suspect]
     Indication: SEDATION
     Dosage: DOSE UNIT:UNKNOWN
     Route: 065
  3. CYCLOSPORINE [Suspect]
     Indication: PROPHYLAXIS AGAINST TRANSPLANT REJECTION
     Route: 065
  4. COLCHICINE [Suspect]
     Indication: GOUT
     Route: 065
  5. SIMVASTATIN [Suspect]
     Indication: HYPERLIPIDAEMIA
     Route: 065
  6. INSULIN [Concomitant]
     Indication: DIABETES MELLITUS
  7. PREDNISONE TAB [Concomitant]
     Indication: DRUG USE FOR UNKNOWN INDICATION
     Route: 048

REACTIONS (2)
  - MYOPATHY TOXIC [None]
  - RHABDOMYOLYSIS [None]
